FAERS Safety Report 4884237-3 (Version None)
Quarter: 2005Q4

REPORT INFORMATION
  Report Type: 
  Country: None (occurrence: None)
  Receive Date: 20051201
  Receipt Date: 20050902
  Transmission Date: 20060501
  Serious: No
  Sender: FDA-Public Use
  Company Number: 2005PV001611

PATIENT
  Age: 49 Year
  Sex: Female
  Weight: 97.977 kg

DRUGS (8)
  1. BYETTA [Suspect]
     Indication: DIABETES MELLITUS NON-INSULIN-DEPENDENT
     Dosage: 10 MCG;SC, 10 MCG;BID;SC, 5 MCG;SC
     Route: 058
     Dates: end: 20050718
  2. BYETTA [Suspect]
     Indication: DIABETES MELLITUS NON-INSULIN-DEPENDENT
     Dosage: 10 MCG;SC, 10 MCG;BID;SC, 5 MCG;SC
     Route: 058
     Dates: start: 20050718, end: 20050818
  3. BYETTA [Suspect]
     Indication: DIABETES MELLITUS NON-INSULIN-DEPENDENT
     Dosage: 10 MCG;SC, 10 MCG;BID;SC, 5 MCG;SC
     Route: 058
     Dates: start: 20050819
  4. ACTOS [Concomitant]
  5. AMARYL [Concomitant]
  6. GLUCOPHAGE [Concomitant]
  7. NOVOLOG [Concomitant]
  8. CALCIUM WITH VITAMIN D [Concomitant]

REACTIONS (8)
  - BLOOD GLUCOSE INCREASED [None]
  - BLOOD KETONE BODY [None]
  - FUNGAL INFECTION [None]
  - FURUNCLE [None]
  - MUSCLE SPASMS [None]
  - NAUSEA [None]
  - RETCHING [None]
  - URINARY TRACT INFECTION [None]
